FAERS Safety Report 16741480 (Version 1)
Quarter: 2019Q3

REPORT INFORMATION
  Report Type: Spontaneous
  Country: BR (occurrence: BR)
  Receive Date: 20190826
  Receipt Date: 20190826
  Transmission Date: 20191005
  Serious: Yes (Other)
  Sender: FDA-Public Use
  Company Number: BR-PFIZER INC-2019349036

PATIENT
  Sex: Female

DRUGS (1)
  1. SUTENT [Suspect]
     Active Substance: SUNITINIB MALATE
     Dosage: UNK, CYCLIC (28 DAYS AND PAUSES FOR 7 DAYS)
     Dates: start: 201905

REACTIONS (5)
  - Aphthous ulcer [Recovered/Resolved]
  - General physical condition abnormal [Unknown]
  - Feeding disorder [Recovered/Resolved]
  - Product administration error [Unknown]
  - Product storage error [Unknown]
